FAERS Safety Report 15028797 (Version 1)
Quarter: 2018Q2

REPORT INFORMATION
  Report Type: Spontaneous
  Country: US (occurrence: US)
  Receive Date: 20180619
  Receipt Date: 20180619
  Transmission Date: 20180711
  Serious: Yes (Other)
  Sender: FDA-Public Use
  Company Number: US-SA-2018SA017133

PATIENT
  Age: 64 Year
  Sex: Male
  Weight: 90.7 kg

DRUGS (6)
  1. ATENOLOL. [Concomitant]
     Active Substance: ATENOLOL
  2. TAXOTERE [Suspect]
     Active Substance: DOCETAXEL
     Indication: BREAST CANCER
     Dosage: 76 MG, QW
     Route: 042
     Dates: start: 20080121, end: 20080121
  3. NEOSAR [Concomitant]
     Active Substance: CYCLOPHOSPHAMIDE
  4. LOSARTIN [Concomitant]
     Active Substance: LOSARTAN
  5. TAXOTERE [Suspect]
     Active Substance: DOCETAXEL
     Dosage: 76 MG, QW
     Route: 042
     Dates: start: 20080502, end: 20080502
  6. DOXORUBICIN [Concomitant]
     Active Substance: DOXORUBICIN

REACTIONS (2)
  - Psychological trauma [Unknown]
  - Alopecia [Not Recovered/Not Resolved]

NARRATIVE: CASE EVENT DATE: 20081102
